FAERS Safety Report 25132258 (Version 1)
Quarter: 2025Q1

REPORT INFORMATION
  Report Type: Spontaneous
  Country: FR (occurrence: FR)
  Receive Date: 20250328
  Receipt Date: 20250328
  Transmission Date: 20250409
  Serious: Yes (Other)
  Sender: BRISTOL-MYERS SQUIBB COMPANY
  Company Number: FR-BRISTOL-MYERS SQUIBB COMPANY-2025-045974

PATIENT

DRUGS (1)
  1. REPOTRECTINIB [Suspect]
     Active Substance: REPOTRECTINIB
     Indication: Non-small cell lung cancer
     Dates: start: 202410

REACTIONS (1)
  - Pulmonary arterial hypertension [Unknown]
